FAERS Safety Report 21658875 (Version 1)
Quarter: 2022Q4

REPORT INFORMATION
  Report Type: Spontaneous
  Country: ES (occurrence: ES)
  Receive Date: 20221129
  Receipt Date: 20221129
  Transmission Date: 20230112
  Serious: Yes (Other)
  Sender: FDA-Public Use
  Company Number: None

PATIENT
  Age: 46 Year
  Sex: Female

DRUGS (1)
  1. INSULIN GLARGINE [Suspect]
     Active Substance: INSULIN GLARGINE
     Indication: Product used for unknown indication
     Dosage: 100 INTERNATIONAL UNIT PER MILLILITRE, PEN DOSAGE 100U/ML.
     Route: 065
     Dates: start: 20220919

REACTIONS (3)
  - Syncope [Unknown]
  - Hypoglycaemia [Unknown]
  - Medication error [Unknown]

NARRATIVE: CASE EVENT DATE: 20220919
